FAERS Safety Report 13010364 (Version 1)
Quarter: 2016Q4

REPORT INFORMATION
  Report Type: Spontaneous
  Country: JP (occurrence: JP)
  Receive Date: 20161208
  Receipt Date: 20161208
  Transmission Date: 20170207
  Serious: Yes (Life-Threatening)
  Sender: FDA-Public Use
  Company Number: JP-BRACCO-010610

PATIENT
  Age: 18 Year
  Sex: Female
  Weight: 51 kg

DRUGS (2)
  1. PROHANCE [Suspect]
     Active Substance: GADOTERIDOL
     Indication: NUCLEAR MAGNETIC RESONANCE IMAGING BRAIN
     Route: 042
     Dates: start: 20161028, end: 20161028
  2. POLARAMINE [Concomitant]
     Active Substance: DEXCHLORPHENIRAMINE MALEATE
     Route: 030
     Dates: start: 20161028, end: 20161028

REACTIONS (1)
  - Anaphylactic shock [Recovered/Resolved]

NARRATIVE: CASE EVENT DATE: 20161028
